FAERS Safety Report 4316062-6 (Version None)
Quarter: 2004Q1

REPORT INFORMATION
  Report Type: 
  Country: None (occurrence: None)
  Receive Date: 20040310
  Receipt Date: 20040304
  Transmission Date: 20041129
  Serious: Yes (Hospitalization)
  Sender: FDA-Public Use
  Company Number: TPG2004A00037

PATIENT
  Age: 68 Year
  Sex: Male

DRUGS (2)
  1. TRENANTONE (LEUPROLIDE ACETATE) (11.25 MILLIGRAM, INJECTION) [Suspect]
     Indication: PROSTATE CANCER
     Dosage: 11.25 MG (11.25 MG, 1 IN 3 M) SUBCUTANEOUS
     Route: 058
  2. CYPROTERONE ACETATE (TABLETS) [Concomitant]

REACTIONS (15)
  - C-REACTIVE PROTEIN INCREASED [None]
  - DIABETES MELLITUS INADEQUATE CONTROL [None]
  - ERYTHEMA [None]
  - FACE OEDEMA [None]
  - FEELING ABNORMAL [None]
  - GENERAL PHYSICAL HEALTH DETERIORATION [None]
  - GENERALISED OEDEMA [None]
  - INJECTION SITE SWELLING [None]
  - LEUKOCYTOSIS [None]
  - LOCALISED OEDEMA [None]
  - LYMPHOPENIA [None]
  - MUCOSAL INFLAMMATION [None]
  - PYREXIA [None]
  - SKIN TIGHTNESS [None]
  - TESTICULAR PAIN [None]
